FAERS Safety Report 25697594 (Version 1)
Quarter: 2025Q3

REPORT INFORMATION
  Report Type: Report from Study
  Country: CA (occurrence: CA)
  Receive Date: 20250818
  Receipt Date: 20250818
  Transmission Date: 20251021
  Serious: Yes (Other)
  Sender: ABBVIE
  Company Number: CA-ABBVIE-6281630

PATIENT
  Age: 43 Year
  Sex: Male

DRUGS (1)
  1. RINVOQ [Suspect]
     Active Substance: UPADACITINIB
     Indication: Crohn^s disease
     Route: 048

REACTIONS (11)
  - Large intestine anastomosis [Unknown]
  - Post procedural inflammation [Not Recovered/Not Resolved]
  - Crohn^s disease [Unknown]
  - Frequent bowel movements [Unknown]
  - Stress [Unknown]
  - Fatigue [Not Recovered/Not Resolved]
  - Sensation of foreign body [Unknown]
  - Faecal calprotectin abnormal [Unknown]
  - Anorectal discomfort [Unknown]
  - Defaecation urgency [Unknown]
  - Abdominal discomfort [Unknown]

NARRATIVE: CASE EVENT DATE: 20250101
